FAERS Safety Report 18240827 (Version 1)
Quarter: 2020Q3

REPORT INFORMATION
  Report Type: Spontaneous
  Country: US (occurrence: US)
  Receive Date: 20200905
  Receipt Date: 20200905
  Transmission Date: 20201103
  Serious: No
  Sender: FDA-Public Use
  Company Number: None

PATIENT
  Age: 50 Year
  Sex: Female
  Weight: 53.1 kg

DRUGS (5)
  1. WOMEN^S ONE A DAY [Concomitant]
     Active Substance: VITAMINS
  2. ESCITALOPRAM 20 MG [Suspect]
     Active Substance: ESCITALOPRAM OXALATE
     Indication: ANXIETY
     Route: 048
     Dates: start: 20200826, end: 20200904
  3. VITAMIN D [Concomitant]
     Active Substance: VITAMIN D NOS
  4. OMEGA 3 [Concomitant]
     Active Substance: OMEGA-3 FATTY ACIDS
  5. ESCITALOPRAM [Concomitant]
     Active Substance: ESCITALOPRAM OXALATE

REACTIONS (5)
  - Sleep deficit [None]
  - Nervousness [None]
  - Anxiety [None]
  - Manufacturing issue [None]
  - Product reconstitution quality issue [None]

NARRATIVE: CASE EVENT DATE: 20200902
